FAERS Safety Report 10151981 (Version 1)
Quarter: 2014Q2

REPORT INFORMATION
  Report Type: Spontaneous
  Country: US (occurrence: US)
  Receive Date: 20140505
  Receipt Date: 20140505
  Transmission Date: 20141212
  Serious: Yes (Other)
  Sender: FDA-Public Use
  Company Number: US-JNJFOC-20140202837

PATIENT
  Sex: 0

DRUGS (2)
  1. STELARA [Suspect]
     Indication: COLITIS
     Route: 058
  2. STELARA [Suspect]
     Indication: PSORIASIS
     Route: 058

REACTIONS (2)
  - Pneumonitis [Unknown]
  - Off label use [Unknown]
